FAERS Safety Report 9921951 (Version 1)
Quarter: 2014Q1

REPORT INFORMATION
  Report Type: Spontaneous
  Country: IN (occurrence: IN)
  Receive Date: 20140225
  Receipt Date: 20140225
  Transmission Date: 20141002
  Serious: Yes (Death, Other)
  Sender: FDA-Public Use
  Company Number: PHHY2014IN017805

PATIENT
  Age: 41 Year
  Sex: Female

DRUGS (3)
  1. FOLIC ACID [Suspect]
     Indication: PANCYTOPENIA
  2. ERYTHROPOIETIN [Suspect]
     Indication: PANCYTOPENIA
  3. VITAMIN B12 [Suspect]
     Indication: PANCYTOPENIA
     Dosage: UNK
     Route: 051

REACTIONS (2)
  - Haemorrhage intracranial [Fatal]
  - Drug ineffective [Unknown]
